FAERS Safety Report 7325325-1 (Version None)
Quarter: 2011Q1

REPORT INFORMATION
  Report Type: 
  Country: None (occurrence: None)
  Receive Date: 20110302
  Receipt Date: 20100708
  Transmission Date: 20110831
  Serious: Yes (Hospitalization)
  Sender: FDA-Public Use
  Company Number: US-BAYER-200929524NA

PATIENT
  Sex: Female
  Weight: 72.273 kg

DRUGS (12)
  1. LEVOTHYROXINE [Concomitant]
     Route: 065
     Dates: start: 19990101
  2. DOPAMINE HYDROCHLORIDE [Concomitant]
     Dosage: UNK
     Dates: start: 20080501
  3. BACLOFEN [Concomitant]
     Dosage: UNK
     Dates: start: 20080101
  4. VICODIN [Concomitant]
  5. GABAPENTIN [Concomitant]
     Dosage: UNK
     Dates: start: 20080923
  6. ATORVASTATIN [Concomitant]
  7. SYNTHROID [Concomitant]
  8. YASMIN [Suspect]
     Indication: CONTRACEPTION
     Dosage: ??-APR-2007 TO JUN-2007
     Route: 048
     Dates: start: 20070401, end: 20070601
  9. LIPITOR [Concomitant]
     Route: 065
     Dates: start: 19990101
  10. ESCITALOPRAM [Concomitant]
  11. YAZ [Suspect]
     Indication: PRODUCT USED FOR UNKNOWN INDICATION
     Route: 048
     Dates: start: 20070701, end: 20080501
  12. MOTRIN [Concomitant]
     Route: 065
     Dates: start: 20070101, end: 20100101

REACTIONS (5)
  - PAIN [None]
  - EMOTIONAL DISTRESS [None]
  - MUSCULAR WEAKNESS [None]
  - MOTOR DYSFUNCTION [None]
  - CEREBROVASCULAR ACCIDENT [None]
